FAERS Safety Report 22685039 (Version 8)
Quarter: 2024Q4

REPORT INFORMATION
  Report Type: Report from Study
  Country: DE (occurrence: DE)
  Receive Date: 20230710
  Receipt Date: 20241121
  Transmission Date: 20250114
  Serious: Yes (Hospitalization, Other)
  Sender: TAKEDA
  Company Number: DE-TAKEDA-2023TUS066778

PATIENT
  Age: 12 Year
  Sex: Female

DRUGS (10)
  1. TEDUGLUTIDE [Suspect]
     Active Substance: TEDUGLUTIDE
     Indication: Short-bowel syndrome
     Dosage: 0.8 MILLIGRAM, QD
     Dates: start: 20171001, end: 20200825
  2. TEDUGLUTIDE [Suspect]
     Active Substance: TEDUGLUTIDE
     Dosage: 0.9 MILLIGRAM, QD
     Dates: start: 20200826, end: 20210317
  3. TEDUGLUTIDE [Suspect]
     Active Substance: TEDUGLUTIDE
     Dosage: 0.9 MILLIGRAM, QD
     Dates: start: 20210318, end: 20210528
  4. TEDUGLUTIDE [Suspect]
     Active Substance: TEDUGLUTIDE
     Dosage: 1.1 MILLIGRAM, QD
     Dates: start: 20230227
  5. TEDUGLUTIDE [Suspect]
     Active Substance: TEDUGLUTIDE
     Dosage: 1.2 MILLIGRAM, QD
     Dates: start: 20230801
  6. TEDUGLUTIDE [Suspect]
     Active Substance: TEDUGLUTIDE
     Dosage: 1.25 MILLIGRAM, QD
     Dates: start: 20240306
  7. FUROSEMIDE [Concomitant]
     Active Substance: FUROSEMIDE
     Indication: Oedema
     Dosage: 280 MILLIGRAM
     Dates: start: 20190828, end: 20191006
  8. FUROSEMIDE [Concomitant]
     Active Substance: FUROSEMIDE
     Indication: Dehydration
     Dosage: 68.6 MILLIGRAM, QD
     Dates: start: 20211215
  9. ENOXAPARIN SODIUM [Concomitant]
     Active Substance: ENOXAPARIN SODIUM
     Indication: Coagulopathy
     Dosage: 80 MILLIGRAM, QD
     Dates: start: 20211215
  10. ERGOCALCIFEROL\PHYTONADIONE\RETINOL\TOCOPHEROL [Concomitant]
     Active Substance: ERGOCALCIFEROL\PHYTONADIONE\RETINOL\TOCOPHEROL
     Indication: Hypovitaminosis
     Dosage: 6 MILLILITER, QD
     Dates: start: 20211215

REACTIONS (16)
  - Vascular device infection [Recovered/Resolved]
  - Otitis media haemophilus [Recovered/Resolved]
  - Tympanic membrane perforation [Recovered/Resolved]
  - Tonsillitis [Recovered/Resolved]
  - Streptococcal infection [Recovered/Resolved]
  - Post procedural haemorrhage [Recovered/Resolved]
  - Escherichia sepsis [Recovered/Resolved]
  - Klebsiella sepsis [Recovered/Resolved]
  - Viral pharyngitis [Recovered/Resolved]
  - Parainfluenzae virus infection [Recovered/Resolved]
  - Staphylococcal sepsis [Recovered/Resolved]
  - Febrile convulsion [Recovered/Resolved]
  - Gastroenteritis norovirus [Recovered/Resolved]
  - Coagulopathy [Recovered/Resolved]
  - Growth hormone deficiency [Not Recovered/Not Resolved]
  - Device related sepsis [Recovered/Resolved]

NARRATIVE: CASE EVENT DATE: 20230702
